FAERS Safety Report 8248692-3 (Version None)
Quarter: 2012Q1

REPORT INFORMATION
  Report Type: 
  Country: None (occurrence: None)
  Receive Date: 20120331
  Receipt Date: 20120320
  Transmission Date: 20120608
  Serious: Yes (Hospitalization, Other)
  Sender: FDA-Public Use
  Company Number: PHHY2012EG026200

PATIENT
  Age: 56 Year
  Sex: Male

DRUGS (11)
  1. ATORVASTATIN [Concomitant]
  2. CURA [Concomitant]
     Indication: LIVER DISORDER
  3. THIOCTIC ACID [Concomitant]
     Indication: NEURITIS
  4. GELAMET 5/800 [Concomitant]
  5. GELAMENT 500/80 [Concomitant]
  6. GEBNAMET 1000 [Concomitant]
  7. EXFORGE [Suspect]
     Indication: HYPERTENSION
     Dosage: 1 DF, DAILY
     Route: 048
     Dates: start: 20110602
  8. PLETAL [Concomitant]
  9. GENURIN [Concomitant]
  10. JANUMET [Suspect]
     Indication: DIABETES MELLITUS
  11. SINEMET [Concomitant]

REACTIONS (2)
  - BLOOD PRESSURE INCREASED [None]
  - PEPTIC ULCER [None]
